FAERS Safety Report 7972483-1 (Version None)
Quarter: 2011Q4

REPORT INFORMATION
  Report Type: 
  Country: None (occurrence: None)
  Receive Date: 20111213
  Receipt Date: 20111207
  Transmission Date: 20120403
  Serious: Yes (Death, Other)
  Sender: FDA-Public Use
  Company Number: FR-BRISTOL-MYERS SQUIBB COMPANY-15493026

PATIENT
  Age: 35 Year
  Sex: Female
  Weight: 74 kg

DRUGS (1)
  1. IPILIMUMAB [Suspect]
     Indication: MALIGNANT MELANOMA
     Dosage: TOTAL INF:3
     Route: 042
     Dates: start: 20101202, end: 20110113

REACTIONS (7)
  - DYSPNOEA [None]
  - OROPHARYNGEAL DISCOMFORT [None]
  - ANAPHYLACTIC SHOCK [None]
  - MALAISE [None]
  - FLUSHING [None]
  - NEOPLASM MALIGNANT [None]
  - HYPOTENSION [None]
